FAERS Safety Report 10256319 (Version 1)
Quarter: 2014Q2

REPORT INFORMATION
  Report Type: Report from Study
  Country: RU (occurrence: RU)
  Receive Date: 20140624
  Receipt Date: 20140624
  Transmission Date: 20141212
  Serious: Yes (Other)
  Sender: FDA-Public Use
  Company Number: RU-JNJFOC-20120811178

PATIENT
  Age: 63 Year
  Sex: Male
  Weight: 74 kg

DRUGS (10)
  1. RIVAROXABAN [Suspect]
     Indication: HIP ARTHROPLASTY
     Route: 048
     Dates: start: 20120808, end: 20120817
  2. RIVAROXABAN [Suspect]
     Indication: THROMBOSIS PROPHYLAXIS
     Route: 048
     Dates: start: 20120808, end: 20120817
  3. PAPAVERINE [Concomitant]
     Dosage: 2.0
     Dates: start: 20120808, end: 20120812
  4. ANALGIN [Concomitant]
     Dosage: 2.0
     Dates: start: 20120808, end: 20120812
  5. DIMEDROL [Concomitant]
     Dosage: 1.0
     Dates: start: 20120808, end: 20120812
  6. ENAP [Concomitant]
     Dates: start: 2012
  7. TRAMADOL [Concomitant]
     Dosage: 2.0
     Dates: start: 20120808, end: 20120812
  8. CLEXANE [Concomitant]
     Dosage: 0.4
     Dates: start: 20120806, end: 20120807
  9. CLEXANE [Concomitant]
     Dosage: 0.4
     Dates: start: 20120814, end: 20120819
  10. CLEXANE [Concomitant]
     Dosage: 0.4 ONCE
     Dates: start: 20120820, end: 20120820

REACTIONS (2)
  - Peripheral artery thrombosis [Unknown]
  - Peripheral artery thrombosis [Unknown]
